FAERS Safety Report 6860084-8 (Version None)
Quarter: 2010Q3

REPORT INFORMATION
  Report Type: 
  Country: None (occurrence: None)
  Receive Date: 20100720
  Receipt Date: 20100712
  Transmission Date: 20110219
  Serious: Yes (Death, Hospitalization, Other)
  Sender: FDA-Public Use
  Company Number: US-SANOFI-AVENTIS-2010SA040845

PATIENT
  Age: 69 Year
  Sex: Male
  Weight: 72 kg

DRUGS (5)
  1. TAXOTERE [Suspect]
     Route: 051
     Dates: start: 20100412, end: 20100412
  2. TAXOTERE [Suspect]
     Route: 051
     Dates: start: 20100503, end: 20100503
  3. TAXOTERE [Suspect]
     Dosage: NON PROTOCOL DRUG
     Route: 051
     Dates: start: 20100614, end: 20100614
  4. BLINDED THERAPY [Suspect]
     Route: 048
     Dates: start: 20100412, end: 20100616
  5. HORMONE ANTAGONISTS AND RELATED AGENTS [Concomitant]
     Indication: PROSTATE CANCER
     Dates: start: 20090701, end: 20100601

REACTIONS (9)
  - ASTHENIA [None]
  - BLOOD FIBRINOGEN DECREASED [None]
  - BONE PAIN [None]
  - DISSEMINATED INTRAVASCULAR COAGULATION [None]
  - HAEMOGLOBIN DECREASED [None]
  - HAEMORRHAGE INTRACRANIAL [None]
  - HYPOAESTHESIA [None]
  - PLATELET COUNT DECREASED [None]
  - SUBDURAL HAEMATOMA [None]
